FAERS Safety Report 5161599-3 (Version None)
Quarter: 2006Q4

REPORT INFORMATION
  Report Type: 
  Country: None (occurrence: None)
  Receive Date: 20061130
  Receipt Date: 20060921
  Transmission Date: 20070319
  Serious: No
  Sender: FDA-Public Use
  Company Number: US-GLAXOSMITHKLINE-A0620999A

PATIENT
  Age: 49 Year
  Sex: Female
  Weight: 65.9 kg

DRUGS (4)
  1. WELLBUTRIN XL [Suspect]
     Indication: DEPRESSION
     Dosage: 150MG PER DAY
     Route: 048
     Dates: start: 20060301, end: 20060919
  2. RYTHMOL [Concomitant]
  3. CALCIUM [Concomitant]
  4. ESTRATEST [Concomitant]

REACTIONS (15)
  - AGITATION [None]
  - ANXIETY [None]
  - DISTURBANCE IN ATTENTION [None]
  - EMOTIONAL DISORDER [None]
  - FEELING JITTERY [None]
  - HYPERHIDROSIS [None]
  - INSOMNIA [None]
  - IRRITABILITY [None]
  - JOB DISSATISFACTION [None]
  - MENTAL STATUS CHANGES [None]
  - MOOD ALTERED [None]
  - NERVOUSNESS [None]
  - RESTLESSNESS [None]
  - SPEECH DISORDER [None]
  - THINKING ABNORMAL [None]
